FAERS Safety Report 11866324 (Version 1)
Quarter: 2015Q4

REPORT INFORMATION
  Report Type: Spontaneous
  Country: CN (occurrence: CN)
  Receive Date: 20151223
  Receipt Date: 20151223
  Transmission Date: 20160305
  Serious: Yes (Other)
  Sender: FDA-Public Use
  Company Number: CN-GILEAD-2015-0188429

PATIENT
  Age: 43 Year
  Sex: Male

DRUGS (6)
  1. ENGERIX-B [Suspect]
     Active Substance: HEPATITIS B VIRUS SUBTYPE ADW2 HBSAG SURFACE PROTEIN ANTIGEN
     Dates: start: 201408, end: 201408
  2. ENGERIX-B [Suspect]
     Active Substance: HEPATITIS B VIRUS SUBTYPE ADW2 HBSAG SURFACE PROTEIN ANTIGEN
     Dosage: UNK
     Route: 065
     Dates: start: 201412, end: 201412
  3. HEPSERA [Suspect]
     Active Substance: ADEFOVIR DIPIVOXIL
     Indication: HEPATITIS B
     Dosage: UNK
     Route: 048
     Dates: start: 2007, end: 201505
  4. HEPTODIN [Suspect]
     Active Substance: LAMIVUDINE
     Dosage: 100 UNK, UNK
     Route: 048
     Dates: end: 2007
  5. ENGERIX-B [Suspect]
     Active Substance: HEPATITIS B VIRUS SUBTYPE ADW2 HBSAG SURFACE PROTEIN ANTIGEN
     Indication: PROPHYLAXIS
     Dosage: UNK
     Dates: start: 201407, end: 201407
  6. HEPTODIN [Suspect]
     Active Substance: LAMIVUDINE
     Indication: HEPATITIS B
     Dosage: 100 MG, UNK
     Route: 048
     Dates: start: 2001

REACTIONS (5)
  - Viral infection [Recovered/Resolved]
  - Hepatitis B [None]
  - No therapeutic response [Unknown]
  - Disease recurrence [Recovered/Resolved]
  - Viral mutation identified [None]

NARRATIVE: CASE EVENT DATE: 2003
